FAERS Safety Report 5671039-3 (Version None)
Quarter: 2008Q1

REPORT INFORMATION
  Report Type: 
  Country: None (occurrence: None)
  Receive Date: 20080318
  Receipt Date: 20080311
  Transmission Date: 20080703
  Serious: Yes (Other)
  Sender: FDA-Public Use
  Company Number: JP-ASTRAZENECA-2008AP01895

PATIENT
  Age: 66 Year
  Sex: Female

DRUGS (4)
  1. OMEPRAL [Suspect]
     Indication: REFLUX OESOPHAGITIS
     Route: 048
     Dates: start: 20080304, end: 20080306
  2. MUCODYNE [Concomitant]
     Dosage: UNKNOWN DOSE
     Route: 048
  3. MUCOSOLVAN [Concomitant]
     Dosage: UNKNOWN DOSE
     Route: 048
  4. SELBEX [Concomitant]
     Dosage: UNKNOWN DOSE
     Route: 048

REACTIONS (3)
  - HAEMATURIA [None]
  - HEADACHE [None]
  - MYALGIA [None]
